FAERS Safety Report 20658653 (Version 3)
Quarter: 2022Q2

REPORT INFORMATION
  Report Type: Spontaneous
  Country: CN (occurrence: CN)
  Receive Date: 20220331
  Receipt Date: 20220411
  Transmission Date: 20220720
  Serious: Yes (Life-Threatening, Hospitalization, Other)
  Sender: FDA-Public Use
  Company Number: CN-LUPIN PHARMACEUTICALS INC.-2022-04683

PATIENT
  Age: 66 Year
  Sex: Male

DRUGS (2)
  1. QUETIAPINE [Suspect]
     Active Substance: QUETIAPINE
     Indication: Mental disorder
     Dosage: 20 DOSAGE FORM
     Route: 065
     Dates: start: 201604
  2. QUETIAPINE [Suspect]
     Active Substance: QUETIAPINE
     Indication: Delirium

REACTIONS (5)
  - Blood pressure decreased [Recovered/Resolved]
  - Cerebral infarction [Recovering/Resolving]
  - Toxicity to various agents [Unknown]
  - Pulmonary toxicity [Recovered/Resolved]
  - Overdose [Unknown]

NARRATIVE: CASE EVENT DATE: 20160405
